FAERS Safety Report 16755163 (Version 5)
Quarter: 2023Q1

REPORT INFORMATION
  Report Type: Report from Study
  Country: FR (occurrence: FR)
  Receive Date: 20190829
  Receipt Date: 20230103
  Transmission Date: 20230417
  Serious: Yes (Death, Hospitalization)
  Sender: FDA-Public Use
  Company Number: FR-PFIZER INC-2019369088

PATIENT
  Age: 80 Year
  Sex: Female
  Weight: 64 kg

DRUGS (8)
  1. IBRANCE [Suspect]
     Active Substance: PALBOCICLIB
     Indication: Breast cancer
     Dosage: 75 MG, DAILY
     Dates: start: 20190403, end: 20190423
  2. FASLODEX [Suspect]
     Active Substance: FULVESTRANT
     Indication: Breast cancer
     Dosage: 500 MG, MONTHLY
     Route: 030
     Dates: start: 20190403
  3. FUROSEMIDE [Suspect]
     Active Substance: FUROSEMIDE
     Dosage: 40 MG, 1X/DAY
     Route: 048
     Dates: start: 20190424, end: 20190424
  4. FUROSEMIDE [Suspect]
     Active Substance: FUROSEMIDE
     Dosage: 60 MG, 1X/DAY
     Route: 042
     Dates: start: 20190425, end: 20190426
  5. FUROSEMIDE [Suspect]
     Active Substance: FUROSEMIDE
     Dosage: 60 MG, SINGLE
     Route: 048
     Dates: start: 20190430, end: 20190430
  6. NICARDIPINE [Concomitant]
     Active Substance: NICARDIPINE
     Indication: Hypertension
     Dosage: UNK
     Route: 048
     Dates: start: 20190421, end: 20190421
  7. ONDANSETRON [Concomitant]
     Active Substance: ONDANSETRON
     Indication: Nausea
     Dosage: UNK
     Route: 042
     Dates: start: 20190421, end: 20190424
  8. CALCIUM POLYSTYRENE SULFONATE [Concomitant]
     Active Substance: CALCIUM POLYSTYRENE SULFONATE
     Indication: Hyperkalaemia
     Dosage: UNK
     Route: 048
     Dates: start: 20190421, end: 20190421

REACTIONS (3)
  - Thrombosis [Fatal]
  - General physical health deterioration [Not Recovered/Not Resolved]
  - Renal failure [Recovered/Resolved]

NARRATIVE: CASE EVENT DATE: 20190401
